FAERS Safety Report 7834004-3 (Version None)
Quarter: 2011Q4

REPORT INFORMATION
  Report Type: 
  Country: None (occurrence: None)
  Receive Date: 20111020
  Receipt Date: 20111006
  Transmission Date: 20120403
  Serious: Yes (Hospitalization)
  Sender: FDA-Public Use
  Company Number: 2011MA014922

PATIENT
  Age: 29 Year
  Sex: Male

DRUGS (5)
  1. LAMOTRIGINE [Concomitant]
  2. MIRTAZAPINE [Suspect]
     Dosage: 30 MG; HS
  3. LACTONE [Concomitant]
  4. METHADONE HCL [Concomitant]
  5. GAMMA BUTYRO [Concomitant]

REACTIONS (15)
  - DYSARTHRIA [None]
  - BLOOD CREATINE PHOSPHOKINASE INCREASED [None]
  - TREMOR [None]
  - AGITATION [None]
  - ENCEPHALITIS [None]
  - HEPATIC FUNCTION ABNORMAL [None]
  - C-REACTIVE PROTEIN INCREASED [None]
  - HYPERTONIA [None]
  - DISINHIBITION [None]
  - RESTLESSNESS [None]
  - HYPERHIDROSIS [None]
  - STARING [None]
  - ABNORMAL BEHAVIOUR [None]
  - CONFUSIONAL STATE [None]
  - HALLUCINATION [None]
